FAERS Safety Report 11933992 (Version 1)
Quarter: 2016Q1

REPORT INFORMATION
  Report Type: Spontaneous
  Country: US (occurrence: US)
  Receive Date: 20160121
  Receipt Date: 20160121
  Transmission Date: 20160526
  Serious: Yes (Hospitalization)
  Sender: FDA-Public Use
  Company Number: PHHY2015US127690

PATIENT
  Sex: Female

DRUGS (1)
  1. ZOFRAN ODT [Suspect]
     Active Substance: ONDANSETRON HYDROCHLORIDE
     Indication: PRODUCT USED FOR UNKNOWN INDICATION
     Dosage: 1 TO 2 TABLETS THREE TIMES A DAY AS NEEDED
     Route: 048

REACTIONS (9)
  - Dehydration [Recovering/Resolving]
  - Nausea [Recovering/Resolving]
  - Hypersomnia [Unknown]
  - Chest discomfort [Recovering/Resolving]
  - Vomiting in pregnancy [Recovering/Resolving]
  - Off label use [Unknown]
  - Somnolence [Recovering/Resolving]
  - Maternal exposure during pregnancy [Unknown]
  - Malaise [Unknown]
